FAERS Safety Report 24178824 (Version 1)
Quarter: 2024Q3

REPORT INFORMATION
  Report Type: Report from Study
  Country: TR (occurrence: TR)
  Receive Date: 20240806
  Receipt Date: 20240806
  Transmission Date: 20241017
  Serious: Yes (Death, Other)
  Sender: PFIZER
  Company Number: TR-PFIZER INC-202400228963

PATIENT
  Age: 77 Year
  Sex: Male

DRUGS (18)
  1. TIGECYCLINE [Suspect]
     Active Substance: TIGECYCLINE
     Indication: Meningitis
     Dosage: 2*50 MG 7 D
     Route: 042
  2. TIGECYCLINE [Suspect]
     Active Substance: TIGECYCLINE
     Indication: Acinetobacter bacteraemia
     Dosage: 2*100 MG 10 D
     Route: 042
  3. TIGECYCLINE [Suspect]
     Active Substance: TIGECYCLINE
     Dosage: 2*5 MG 14 D
     Route: 037
  4. MEROPENEM [Suspect]
     Active Substance: MEROPENEM
     Indication: Meningitis bacterial
     Dosage: 3*2 GR 4 D
  5. MEROPENEM [Suspect]
     Active Substance: MEROPENEM
     Indication: Acinetobacter infection
  6. MEROPENEM [Suspect]
     Active Substance: MEROPENEM
     Indication: Acinetobacter bacteraemia
  7. CEFOPERAZONE SODIUM\SULBACTAM SODIUM [Suspect]
     Active Substance: CEFOPERAZONE SODIUM\SULBACTAM SODIUM
     Indication: Meningitis bacterial
     Dosage: 3*2 GR, 13 D
  8. CEFOPERAZONE SODIUM\SULBACTAM SODIUM [Suspect]
     Active Substance: CEFOPERAZONE SODIUM\SULBACTAM SODIUM
     Indication: Acinetobacter infection
  9. CEFOPERAZONE SODIUM\SULBACTAM SODIUM [Suspect]
     Active Substance: CEFOPERAZONE SODIUM\SULBACTAM SODIUM
     Indication: Acinetobacter bacteraemia
  10. AMIKACIN [Suspect]
     Active Substance: AMIKACIN
     Indication: Acinetobacter bacteraemia
     Dosage: 1*15 MG/KG 13 D
     Route: 042
  11. AMIKACIN [Suspect]
     Active Substance: AMIKACIN
     Indication: Meningitis
     Dosage: 2*10 MG 13 D
     Route: 037
  12. LINEZOLID [Concomitant]
     Active Substance: LINEZOLID
     Dosage: UNK
  13. MICAFUNGIN [Suspect]
     Active Substance: MICAFUNGIN SODIUM
     Indication: Meningitis
     Dosage: 1*100 MG 13 D
  14. MICAFUNGIN [Suspect]
     Active Substance: MICAFUNGIN SODIUM
     Indication: Acinetobacter bacteraemia
  15. RIFAMPIN [Suspect]
     Active Substance: RIFAMPIN
     Indication: Meningitis
     Dosage: UNK, 13 D
  16. RIFAMPIN [Suspect]
     Active Substance: RIFAMPIN
     Indication: Acinetobacter bacteraemia
  17. SULFAMETHOXAZOLE\TRIMETHOPRIM [Suspect]
     Active Substance: SULFAMETHOXAZOLE\TRIMETHOPRIM
     Indication: Acinetobacter bacteraemia
     Dosage: 3*10 MG/KG 7 D
  18. SULFAMETHOXAZOLE\TRIMETHOPRIM [Suspect]
     Active Substance: SULFAMETHOXAZOLE\TRIMETHOPRIM
     Indication: Meningitis

REACTIONS (1)
  - Drug ineffective [Fatal]
